FAERS Safety Report 16285003 (Version 2)
Quarter: 2019Q2

REPORT INFORMATION
  Report Type: Report from Study
  Country: SE (occurrence: SE)
  Receive Date: 20190508
  Receipt Date: 20190522
  Transmission Date: 20190711
  Serious: Yes (Hospitalization)
  Sender: FDA-Public Use
  Company Number: SE-ROCHE-2310017

PATIENT
  Age: 29 Year
  Sex: Male
  Weight: 70 kg

DRUGS (4)
  1. OCRELIZUMAB. [Suspect]
     Active Substance: OCRELIZUMAB
     Dosage: MOST RECENT DOSE ON 27/MAR/2019
     Route: 042
  2. LIVOSTIN [Concomitant]
     Active Substance: LEVOCABASTINE HYDROCHLORIDE
     Indication: SEASONAL ALLERGY
     Route: 065
     Dates: start: 20190323
  3. OCRELIZUMAB. [Suspect]
     Active Substance: OCRELIZUMAB
     Indication: RELAPSING MULTIPLE SCLEROSIS
     Dosage: TWO 300-MG IV INFUSION ON DAYS 1 AND 15 THEN AS SINGLE INFUSION OF 600 MG ON WEEKS 24 AND 48.
     Route: 042
     Dates: start: 20161207
  4. KESTIN [Concomitant]
     Active Substance: EBASTINE
     Indication: SEASONAL ALLERGY
     Route: 065
     Dates: start: 20190323

REACTIONS (1)
  - Pharyngitis [Recovering/Resolving]

NARRATIVE: CASE EVENT DATE: 20190417
